FAERS Safety Report 5946359-5 (Version None)
Quarter: 2008Q4

REPORT INFORMATION
  Report Type: 
  Country: None (occurrence: None)
  Receive Date: 20081110
  Receipt Date: 20081022
  Transmission Date: 20090506
  Serious: No
  Sender: FDA-Public Use
  Company Number: US-BAYER-200836665NA

PATIENT
  Sex: Female

DRUGS (3)
  1. YAZ [Suspect]
     Indication: DRUG USE FOR UNKNOWN INDICATION
     Route: 048
  2. YAZ [Suspect]
     Route: 048
  3. ANTIBIOTICS NOS [Concomitant]

REACTIONS (3)
  - MENSTRUATION DELAYED [None]
  - METRORRHAGIA [None]
  - ORAL INFECTION [None]
